FAERS Safety Report 12060578 (Version 2)
Quarter: 2016Q1

REPORT INFORMATION
  Report Type: Spontaneous
  Country: US (occurrence: US)
  Receive Date: 20160210
  Receipt Date: 20160211
  Transmission Date: 20160526
  Serious: Yes (Other)
  Sender: FDA-Public Use
  Company Number: US-SEBELA IRELAND LIMITED-2016SEB00006

PATIENT
  Sex: Female
  Weight: .53 kg

DRUGS (2)
  1. HYDROCORTISONE. [Suspect]
     Active Substance: HYDROCORTISONE
     Indication: ADRENAL INSUFFICIENCY NEONATAL
     Dosage: 1 MG/KG, EVERY 6 HOURS
     Route: 065
  2. DOPAMINE [Concomitant]
     Active Substance: DOPAMINE\DOPAMINE HYDROCHLORIDE
     Route: 065

REACTIONS (3)
  - Pneumatosis [Recovered/Resolved]
  - Portal venous gas [Recovered/Resolved]
  - Pneumoperitoneum [Recovered/Resolved]
